FAERS Safety Report 7947027-0 (Version None)
Quarter: 2011Q4

REPORT INFORMATION
  Report Type: 
  Country: None (occurrence: None)
  Receive Date: 20111129
  Receipt Date: 20111011
  Transmission Date: 20120403
  Serious: Yes (Hospitalization)
  Sender: FDA-Public Use
  Company Number: US-ASTRAZENECA-2011SE61049

PATIENT
  Sex: Male

DRUGS (1)
  1. VIMOVO [Suspect]
     Dosage: 500+20 MG, ONE TABLET TWICE DAILY
     Route: 048
     Dates: start: 20101201

REACTIONS (1)
  - GASTROINTESTINAL HAEMORRHAGE [None]
